FAERS Safety Report 4433706-9 (Version None)
Quarter: 2004Q3

REPORT INFORMATION
  Report Type: 
  Country: None (occurrence: None)
  Receive Date: 20040825
  Receipt Date: 20040825
  Transmission Date: 20050211
  Serious: Yes (Other)
  Sender: FDA-Public Use
  Company Number: None

PATIENT
  Sex: Male
  Weight: 43.0917 kg

DRUGS (2)
  1. ATOMOXETINE (STRATTERA) 40MG ELI LILLY [Suspect]
     Indication: ATTENTION DEFICIT/HYPERACTIVITY DISORDER
     Dosage: 40MG PO DAILY
     Route: 048
     Dates: start: 20030201
  2. ARIPIPRAZOLE [Concomitant]

REACTIONS (7)
  - ABDOMINAL PAIN UPPER [None]
  - ABNORMAL BEHAVIOUR [None]
  - ANGER [None]
  - HALLUCINATION [None]
  - HALLUCINATION, AUDITORY [None]
  - SCREAMING [None]
  - VERBAL ABUSE [None]
